FAERS Safety Report 17574032 (Version 1)
Quarter: 2020Q1

REPORT INFORMATION
  Report Type: Spontaneous
  Country: US (occurrence: US)
  Receive Date: 20200323
  Receipt Date: 20200323
  Transmission Date: 20200409
  Serious: No
  Sender: FDA-Public Use
  Company Number: US-ALKERMES INC.-ALK-2020-001215

PATIENT
  Age: 44 Year
  Sex: Female

DRUGS (3)
  1. ESCITALOPRAM [Concomitant]
     Active Substance: ESCITALOPRAM OXALATE
     Indication: PRODUCT USED FOR UNKNOWN INDICATION
     Dosage: UNK
  2. ARISTADA [Suspect]
     Active Substance: ARIPIPRAZOLE LAUROXIL
     Indication: SCHIZOPHRENIA
     Dosage: 441 MG, QMO
     Route: 030
     Dates: start: 20200312
  3. ARISTADA [Suspect]
     Active Substance: ARIPIPRAZOLE LAUROXIL
     Dosage: 441 MG, QMO
     Route: 030
     Dates: start: 201911, end: 201911

REACTIONS (13)
  - Disturbance in social behaviour [Unknown]
  - Poor personal hygiene [Unknown]
  - Dysgraphia [Unknown]
  - Mood altered [Unknown]
  - Reading disorder [Unknown]
  - Depression [Unknown]
  - Incontinence [Unknown]
  - Psychotic disorder [Not Recovered/Not Resolved]
  - Obsessive-compulsive symptom [Unknown]
  - Echolalia [Unknown]
  - Wrong technique in product usage process [Unknown]
  - Apathy [Unknown]
  - Dysphagia [Unknown]

NARRATIVE: CASE EVENT DATE: 201911
